FAERS Safety Report 18930522 (Version 1)
Quarter: 2021Q1

REPORT INFORMATION
  Report Type: Spontaneous
  Country: JP (occurrence: JP)
  Receive Date: 20210224
  Receipt Date: 20210224
  Transmission Date: 20210420
  Serious: Yes (Death)
  Sender: FDA-Public Use
  Company Number: JP-ALKEM LABORATORIES LIMITED-JP-ALKEM-2021-00795

PATIENT
  Age: 19 Month
  Sex: Male

DRUGS (1)
  1. SILDENAFIL. [Suspect]
     Active Substance: SILDENAFIL
     Indication: PRODUCT USED FOR UNKNOWN INDICATION
     Dosage: 300 MILLIGRAM
     Route: 065

REACTIONS (6)
  - Toxicity to various agents [Fatal]
  - Tachycardia [Unknown]
  - Hyperthermia [Unknown]
  - Erection increased [Unknown]
  - Priapism [Unknown]
  - Accidental exposure to product [Fatal]
